FAERS Safety Report 5606459-6 (Version None)
Quarter: 2008Q1

REPORT INFORMATION
  Report Type: 
  Country: None (occurrence: None)
  Receive Date: 20080125
  Receipt Date: 20080116
  Transmission Date: 20080703
  Serious: Yes (Hospitalization)
  Sender: FDA-Public Use
  Company Number: 2008-00260

PATIENT
  Age: 64 Year
  Sex: Male

DRUGS (1)
  1. FENTANYL-100 [Suspect]
     Indication: PAIN
     Dosage: 2 PATCH, Q2DAYS, TRANSDERMAL
     Route: 062
     Dates: start: 20071218, end: 20080105

REACTIONS (2)
  - DRUG WITHDRAWAL CONVULSIONS [None]
  - PHARMACEUTICAL PRODUCT COMPLAINT [None]
